FAERS Safety Report 7771888-1 (Version None)
Quarter: 2011Q3

REPORT INFORMATION
  Report Type: 
  Country: None (occurrence: None)
  Receive Date: 20110922
  Receipt Date: 20110210
  Transmission Date: 20111222
  Serious: No
  Sender: FDA-Public Use
  Company Number: US-ASTRAZENECA-2011SE08226

PATIENT
  Age: 48 Year
  Sex: Female

DRUGS (1)
  1. SEROQUEL [Suspect]
     Indication: BIPOLAR DISORDER
     Route: 048
     Dates: start: 20070101

REACTIONS (4)
  - FORMICATION [None]
  - DRUG DOSE OMISSION [None]
  - HALLUCINATION, VISUAL [None]
  - PSYCHOTIC DISORDER [None]
